FAERS Safety Report 21493132 (Version 1)
Quarter: 2022Q4

REPORT INFORMATION
  Report Type: Report from Study
  Country: US (occurrence: US)
  Receive Date: 20221021
  Receipt Date: 20221021
  Transmission Date: 20230112
  Serious: Yes (Other)
  Sender: FDA-Public Use
  Company Number: US-ABBVIE-4140697

PATIENT
  Sex: Male

DRUGS (2)
  1. IMBRUVICA [Suspect]
     Active Substance: IBRUTINIB
     Indication: Product used for unknown indication
     Route: 048
  2. EVUSHELD [Concomitant]
     Active Substance: CILGAVIMAB\TIXAGEVIMAB
     Indication: COVID-19 immunisation
     Dosage: FREQUENCY- ONCE
     Route: 030

REACTIONS (4)
  - Chronic lymphocytic leukaemia [Unknown]
  - Onychoclasis [Unknown]
  - Dry skin [Unknown]
  - Vaccination failure [Unknown]
